FAERS Safety Report 5896999-7 (Version None)
Quarter: 2008Q3

REPORT INFORMATION
  Report Type: 
  Country: None (occurrence: None)
  Receive Date: 20080923
  Receipt Date: 20080918
  Transmission Date: 20090109
  Serious: Yes (Other)
  Sender: FDA-Public Use
  Company Number: 2008SP013779

PATIENT
  Age: 48 Year
  Sex: Male

DRUGS (13)
  1. PEG-INTRON [Suspect]
     Indication: HEPATITIS C
     Dosage: 150 MCG QW SC
     Route: 058
     Dates: start: 20080411
  2. RIBAVIRIN [Suspect]
     Indication: HEPATITIS C
     Dosage: 1200 MG QD PO
     Route: 048
     Dates: start: 20080411
  3. ENALAPRIL MALEATE [Concomitant]
  4. HYDROCHLOROTHIAZIDE [Concomitant]
  5. TOPROL-XL [Concomitant]
  6. TRICOR [Concomitant]
  7. ZEGERID [Concomitant]
  8. PLAVIX [Concomitant]
  9. ZYPREXA [Concomitant]
  10. TOPAMAX [Concomitant]
  11. LITHIUM [Concomitant]
  12. LAMICTAL [Concomitant]
  13. TEMAZEPAM [Concomitant]

REACTIONS (7)
  - CANDIDIASIS [None]
  - CONSTIPATION [None]
  - DEHYDRATION [None]
  - FUNGAL INFECTION [None]
  - FUNGAL OESOPHAGITIS [None]
  - HALLUCINATIONS, MIXED [None]
  - ORAL PAIN [None]
